FAERS Safety Report 4641178-4 (Version None)
Quarter: 2005Q2

REPORT INFORMATION
  Report Type: 
  Country: None (occurrence: None)
  Receive Date: 20050418
  Receipt Date: 20050418
  Transmission Date: 20051028
  Serious: Yes (Other)
  Sender: FDA-Public Use
  Company Number: None

PATIENT
  Age: 81 Year
  Sex: Female
  Weight: 68.0396 kg

DRUGS (3)
  1. KAOPECTATE CAPLETS (^NEW AND IMPROVED^, CONTAINING BISMUTH SUBSALICYLA [Suspect]
     Indication: DIARRHOEA
     Dosage: 1 TAB, 1 OR 2 TIMES/DAY
     Dates: start: 20050314, end: 20050316
  2. CARDIZEM CD [Concomitant]
  3. GINGER [Concomitant]

REACTIONS (4)
  - DRUG INEFFECTIVE [None]
  - FAECES DISCOLOURED [None]
  - MUSCLE SPASMS [None]
  - PHARMACEUTICAL PRODUCT COMPLAINT [None]
